FAERS Safety Report 26076970 (Version 1)
Quarter: 2025Q4

REPORT INFORMATION
  Report Type: Spontaneous
  Country: US (occurrence: None)
  Receive Date: 20251121
  Receipt Date: 20251121
  Transmission Date: 20260117
  Serious: Yes (Death)
  Sender: FDA-CTU
  Company Number: None

PATIENT
  Age: 70 Year
  Sex: Male
  Weight: 56.7 kg

DRUGS (1)
  1. ALVIMOPAN [Suspect]
     Active Substance: ALVIMOPAN
     Indication: Prophylaxis
     Dosage: FREQUENCY : TWICE A DAY;?
     Route: 048
     Dates: start: 20251117, end: 20251120

REACTIONS (6)
  - Abdominal pain [None]
  - Abdominal distension [None]
  - Intestinal obstruction [None]
  - Unresponsive to stimuli [None]
  - Pulse absent [None]
  - Myocardial infarction [None]
